FAERS Safety Report 5400054-X (Version None)
Quarter: 2007Q3

REPORT INFORMATION
  Report Type: 
  Country: None (occurrence: None)
  Receive Date: 20070726
  Receipt Date: 20070726
  Transmission Date: 20080115
  Serious: Yes (Other)
  Sender: FDA-Public Use
  Company Number: None

PATIENT
  Age: 39 Year
  Sex: Female
  Weight: 142.8831 kg

DRUGS (5)
  1. TRIAMCINOLONE ACETONIDE [Suspect]
     Indication: DERMATITIS CONTACT
     Dosage: APPLY AS NEEDED  3X DAILY  CUTANEOUS
     Route: 003
     Dates: start: 20070718, end: 20070720
  2. TRIAMCINOLONE ACETONIDE [Suspect]
     Indication: PRURITUS
     Dosage: APPLY AS NEEDED  3X DAILY  CUTANEOUS
     Route: 003
     Dates: start: 20070718, end: 20070720
  3. TRIAMCINOLONE ACETONIDE [Suspect]
     Indication: RASH PUSTULAR
     Dosage: APPLY AS NEEDED  3X DAILY  CUTANEOUS
     Route: 003
     Dates: start: 20070718, end: 20070720
  4. BENADRYL [Concomitant]
  5. PANAMA JACKS SUNBURN ALOE VERA GEL WITH LIDOCAINE [Concomitant]

REACTIONS (8)
  - APPLICATION SITE ERYTHEMA [None]
  - APPLICATION SITE PUSTULES [None]
  - APPLICATION SITE SWELLING [None]
  - DISCOMFORT [None]
  - HYPERSENSITIVITY [None]
  - PAIN OF SKIN [None]
  - PYREXIA [None]
  - SKIN BURNING SENSATION [None]
